FAERS Safety Report 6394493-0 (Version None)
Quarter: 2009Q4

REPORT INFORMATION
  Report Type: 
  Country: None (occurrence: None)
  Receive Date: 20091006
  Receipt Date: 20090922
  Transmission Date: 20100525
  Serious: Yes (Hospitalization)
  Sender: FDA-Public Use
  Company Number: 001269

PATIENT
  Sex: Male
  Weight: 68.0396 kg

DRUGS (14)
  1. LACOSAMIDE [Suspect]
     Indication: EPILEPSY
     Dosage: (300 MG BID ORAL)
     Route: 048
     Dates: start: 20011217
  2. AMLODIPINE W/BENAZEPRIL HYDROCHLORIDE [Concomitant]
  3. TOPIRAMATE [Concomitant]
  4. PROTONIX /01263201/ [Concomitant]
  5. GABITRIL [Concomitant]
  6. TIAGABINE HCL [Concomitant]
  7. MULTI-VITAMINS [Concomitant]
  8. OXYGEN [Concomitant]
  9. LEVOTHYROXINE SODIUM [Concomitant]
  10. MESALAZINE [Concomitant]
  11. NEXIUM [Concomitant]
  12. TRIAMCINOLONE [Concomitant]
  13. FOSINOPRIL SODIUM [Concomitant]
  14. COTRIM [Concomitant]

REACTIONS (5)
  - BLOOD GLUCOSE INCREASED [None]
  - BRONCHITIS [None]
  - PLEURISY [None]
  - UPPER RESPIRATORY TRACT INFECTION [None]
  - WHITE BLOOD CELL COUNT INCREASED [None]
